FAERS Safety Report 9493142 (Version 5)
Quarter: 2014Q3

REPORT INFORMATION
  Report Type: Report from Study
  Country: US (occurrence: US)
  Receive Date: 20130902
  Receipt Date: 20140812
  Transmission Date: 20150326
  Serious: Yes (Hospitalization, Other)
  Sender: FDA-Public Use
  Company Number: US-ALEXION PHARMACEUTICALS INC.-A201302041

PATIENT

DRUGS (2)
  1. SOLIRIS [Suspect]
     Active Substance: ECULIZUMAB
     Indication: HAEMOLYTIC URAEMIC SYNDROME
     Dosage: 900 MG, QW
     Route: 042
     Dates: start: 201305
  2. SOLIRIS [Suspect]
     Active Substance: ECULIZUMAB
     Dosage: 1200 MG, Q2W
     Route: 042
     Dates: start: 201306

REACTIONS (18)
  - Staphylococcal infection [Unknown]
  - Pyrexia [Unknown]
  - Renal failure [Unknown]
  - Blood glucose increased [Unknown]
  - Arteriovenous fistula operation [Unknown]
  - Memory impairment [Not Recovered/Not Resolved]
  - Inappropriate schedule of drug administration [Recovered/Resolved]
  - Vomiting [Unknown]
  - Blood glucose fluctuation [Not Recovered/Not Resolved]
  - Diabetic ketoacidosis [Unknown]
  - Chromaturia [Unknown]
  - Blood creatinine increased [Unknown]
  - Central venous catheterisation [Recovered/Resolved]
  - Chills [Unknown]
  - Blood urea increased [Unknown]
  - Diarrhoea [Not Recovered/Not Resolved]
  - Renal disorder [Unknown]
  - Confusional state [Not Recovered/Not Resolved]

NARRATIVE: CASE EVENT DATE: 201305
